FAERS Safety Report 20745443 (Version 2)
Quarter: 2022Q3

REPORT INFORMATION
  Report Type: Report from Study
  Country: JP (occurrence: None)
  Receive Date: 20220425
  Receipt Date: 20220801
  Transmission Date: 20221026
  Serious: Yes (Other)
  Sender: FDA-Public Use
  Company Number: JP-Merck Healthcare KGaA-9224896

PATIENT
  Age: 85 Year
  Sex: Male
  Weight: 62 kg

DRUGS (13)
  1. BAVENCIO [Suspect]
     Active Substance: AVELUMAB
     Indication: Metastatic renal cell carcinoma
     Dosage: ADMINISTRATION RATE: 280 ML/HOUR
     Route: 041
     Dates: start: 20210216
  2. BAVENCIO [Suspect]
     Active Substance: AVELUMAB
     Route: 041
     Dates: start: 20210511
  3. BAVENCIO [Suspect]
     Active Substance: AVELUMAB
     Route: 041
     Dates: start: 20211026
  4. BAVENCIO [Suspect]
     Active Substance: AVELUMAB
     Route: 041
     Dates: start: 20220121, end: 20220204
  5. INLYTA [Suspect]
     Active Substance: AXITINIB
     Indication: Metastatic renal cell carcinoma
     Dosage: 3 MG/TIME
     Route: 048
     Dates: start: 202102
  6. INLYTA [Suspect]
     Active Substance: AXITINIB
     Route: 048
     Dates: start: 20210216, end: 20210301
  7. LINAGLIPTIN [Suspect]
     Active Substance: LINAGLIPTIN
     Indication: Product used for unknown indication
  8. ACETAMINOPHEN [Concomitant]
     Active Substance: ACETAMINOPHEN
     Indication: Premedication
     Route: 041
     Dates: start: 20210216, end: 20210427
  9. ACETAMINOPHEN [Concomitant]
     Active Substance: ACETAMINOPHEN
     Route: 041
     Dates: start: 20210511, end: 20211109
  10. ACETAMINOPHEN [Concomitant]
     Active Substance: ACETAMINOPHEN
     Route: 041
     Dates: start: 20220121, end: 20220204
  11. DIPHENHYDRAMINE [Concomitant]
     Active Substance: DIPHENHYDRAMINE
     Indication: Premedication
     Route: 041
     Dates: start: 20210216, end: 20210427
  12. DIPHENHYDRAMINE [Concomitant]
     Active Substance: DIPHENHYDRAMINE
     Route: 041
     Dates: start: 20210511, end: 20211109
  13. DIPHENHYDRAMINE [Concomitant]
     Active Substance: DIPHENHYDRAMINE
     Route: 041
     Dates: start: 20220121, end: 20220204

REACTIONS (4)
  - Type 2 diabetes mellitus [Recovering/Resolving]
  - Pemphigoid [Recovering/Resolving]
  - Altered state of consciousness [Recovered/Resolved]
  - Dysphonia [Recovering/Resolving]

NARRATIVE: CASE EVENT DATE: 20210218
